FAERS Safety Report 14928090 (Version 4)
Quarter: 2022Q1

REPORT INFORMATION
  Report Type: Other
  Country: DE (occurrence: None)
  Receive Date: 20180523
  Receipt Date: 20220302
  Transmission Date: 20220424
  Serious: Yes (Other)
  Sender: FDA-Public Use
  Company Number: DE-ROCHE-2128105

PATIENT

DRUGS (2)
  1. ALTEPLASE [Suspect]
     Active Substance: ALTEPLASE
     Indication: Ischaemic stroke
     Dosage: 10 PERCENT OF 0.9 MG/KG AS BOLUS
     Route: 040
  2. ALTEPLASE [Suspect]
     Active Substance: ALTEPLASE
     Dosage: 90 PERCENT OF 0.9 MG/KG BY INFUSION DURING A 60-MINUTE PERIOD
     Route: 042

REACTIONS (2)
  - Benign neoplasm [Unknown]
  - Neoplasm malignant [Unknown]
